FAERS Safety Report 4339615-8 (Version None)
Quarter: 2004Q2

REPORT INFORMATION
  Report Type: 
  Country: None (occurrence: None)
  Receive Date: 20040415
  Receipt Date: 19940510
  Transmission Date: 20050107
  Serious: Yes (Death, Congenital Anomaly)
  Sender: FDA-Public Use
  Company Number: US-MERCK-94040669

PATIENT
  Age: 24 Year
  Sex: Female
  Weight: 55 kg

DRUGS (1)
  1. MEVACOR [Suspect]
     Indication: HYPERCHOLESTEROLAEMIA
     Route: 048

REACTIONS (10)
  - ABORTION INDUCED [None]
  - BRAIN HERNIATION [None]
  - CONGENITAL ANOMALY [None]
  - DENTOFACIAL ANOMALY [None]
  - DRUG EXPOSURE DURING PREGNANCY [None]
  - HYDROCEPHALUS [None]
  - KYPHOSIS [None]
  - NEURAL TUBE DEFECT [None]
  - SKULL MALFORMATION [None]
  - SPINA BIFIDA [None]
